FAERS Safety Report 8750036 (Version 2)
Quarter: 2012Q4

REPORT INFORMATION
  Report Type: Report from Study
  Country: US (occurrence: None)
  Receive Date: 20120808
  Receipt Date: 20120821
  Transmission Date: 20130627
  Serious: Yes (Hospitalization)
  Sender: FDA-Public Use
  Company Number: 2012SGN00332

PATIENT
  Age: 51 Year
  Sex: Female
  Weight: 93.9 kg

DRUGS (13)
  1. BRENTUXIMAB VEDOTIN [Suspect]
     Indication: HODGKIN^S DISEASE
     Dosage: 1.2 MG/KG, UNK
     Dates: start: 20120515, end: 20120612
  2. ADRIAMYCIN [Suspect]
     Indication: HODGKIN^S DISEASE
     Dosage: 375 MG/M2, UNK
     Dates: start: 20120612, end: 20120612
  3. VINBLASTINE SULFATE [Suspect]
     Indication: HODGKIN^S DISEASE
     Dosage: 6 MG/M2, UNK
     Dates: start: 20120612, end: 20120612
  4. DACARBAZINE [Suspect]
     Indication: HODGKIN^S DISEASE
     Dosage: 25 MG/M2, UNK
     Dates: start: 20120612, end: 20120612
  5. IBUPROFEN [Concomitant]
  6. LORAZEPAM [Concomitant]
  7. ZOFRAN [Concomitant]
  8. PROCHLORPERAZINE (PROCHLORPERAZINE MALEATE) [Concomitant]
  9. APREPITANT [Concomitant]
  10. LISINOPRIL (LISINOPRIL DIHYDRATE) [Concomitant]
  11. NAPROXEN SODIUM [Concomitant]
  12. OMEPRAZOLE [Concomitant]
  13. CYANOCOBALAMIN [Concomitant]

REACTIONS (7)
  - FEBRILE NEUTROPENIA [None]
  - ILEUS [None]
  - OESOPHAGITIS [None]
  - TRANSAMINASES INCREASED [None]
  - WHITE BLOOD CELL COUNT DECREASED [None]
  - DEHYDRATION [None]
  - BACTERIAL TEST POSITIVE [None]
